FAERS Safety Report 9983228 (Version 1)
Quarter: 2014Q1

REPORT INFORMATION
  Report Type: Report from Study
  Country: US (occurrence: US)
  Receive Date: 20140307
  Receipt Date: 20140307
  Transmission Date: 20141002
  Serious: Yes (Other)
  Sender: FDA-Public Use
  Company Number: US-ABBVIE-13P-163-1177318-00

PATIENT
  Sex: Female

DRUGS (15)
  1. HUMIRA [Suspect]
     Indication: ANKYLOSING SPONDYLITIS
     Dates: start: 2006, end: 201306
  2. HUMIRA [Suspect]
     Dosage: RESTARTED
     Dates: start: 201308
  3. METHOTREXATE [Concomitant]
     Indication: PRODUCT USED FOR UNKNOWN INDICATION
  4. LEVOTHYROXINE [Concomitant]
     Indication: PRODUCT USED FOR UNKNOWN INDICATION
  5. FUROSEMIDE [Concomitant]
     Indication: PRODUCT USED FOR UNKNOWN INDICATION
  6. POTASSIUM [Concomitant]
     Indication: PRODUCT USED FOR UNKNOWN INDICATION
  7. VENLAFAXINE [Concomitant]
     Indication: PRODUCT USED FOR UNKNOWN INDICATION
  8. OMEPRAZOLE [Concomitant]
     Indication: PRODUCT USED FOR UNKNOWN INDICATION
  9. ZYRTEC [Concomitant]
     Indication: PRODUCT USED FOR UNKNOWN INDICATION
  10. FLONASE [Concomitant]
     Indication: PRODUCT USED FOR UNKNOWN INDICATION
  11. MULTIVITAMINS [Concomitant]
     Indication: PRODUCT USED FOR UNKNOWN INDICATION
     Dosage: DAILY
  12. VITAMIN B1 [Concomitant]
     Indication: PRODUCT USED FOR UNKNOWN INDICATION
  13. VIT B12 [Concomitant]
     Indication: PRODUCT USED FOR UNKNOWN INDICATION
  14. VIT D [Concomitant]
     Indication: PRODUCT USED FOR UNKNOWN INDICATION
  15. CALCIUM [Concomitant]
     Indication: PRODUCT USED FOR UNKNOWN INDICATION

REACTIONS (7)
  - Surgery [Not Recovered/Not Resolved]
  - Gastric bypass [Unknown]
  - Fatigue [Recovered/Resolved]
  - Road traffic accident [Unknown]
  - Drug dose omission [Unknown]
  - Arthralgia [Not Recovered/Not Resolved]
  - Back pain [Not Recovered/Not Resolved]
